FAERS Safety Report 12301409 (Version 4)
Quarter: 2016Q3

REPORT INFORMATION
  Report Type: Spontaneous
  Country: US (occurrence: US)
  Receive Date: 20160425
  Receipt Date: 20160825
  Transmission Date: 20161109
  Serious: Yes (Other)
  Sender: FDA-Public Use
  Company Number: US-BAYER-2016-076356

PATIENT
  Age: 31 Year
  Sex: Female
  Weight: 82.86 kg

DRUGS (4)
  1. LISINOPRIL. [Concomitant]
     Active Substance: LISINOPRIL
     Dosage: 20 MG, QD
     Route: 048
     Dates: start: 20160416
  2. TOPROL XL [Concomitant]
     Active Substance: METOPROLOL SUCCINATE
     Dosage: 200 MG, QD
     Route: 048
     Dates: start: 20160416
  3. MIRENA [Suspect]
     Active Substance: LEVONORGESTREL
     Indication: CONTRACEPTION
     Dosage: 20 MCG/24HR, CONT
     Route: 015
     Dates: start: 20140210, end: 20160427
  4. ALDACTONE A [Concomitant]
     Active Substance: SPIRONOLACTONE
     Dosage: 50 MG, QD
     Route: 048
     Dates: start: 20160416

REACTIONS (17)
  - Pelvic fluid collection [None]
  - Ectopic pregnancy with contraceptive device [Recovered/Resolved]
  - Melanocytic naevus [None]
  - Drug ineffective [None]
  - Pelvic pain [None]
  - Coital bleeding [None]
  - Papule [None]
  - Vomiting [Recovered/Resolved]
  - Haemorrhage in pregnancy [None]
  - Ovarian cyst [None]
  - Human papilloma virus test positive [None]
  - Menstruation delayed [None]
  - Breast tenderness [None]
  - Acne [None]
  - Female orgasmic disorder [None]
  - Hidradenitis [None]
  - Abdominal pain [Recovered/Resolved]

NARRATIVE: CASE EVENT DATE: 20160410
